FAERS Safety Report 5000117-7 (Version None)
Quarter: 2006Q2

REPORT INFORMATION
  Report Type: 
  Country: None (occurrence: None)
  Receive Date: 20060510
  Receipt Date: 20060503
  Transmission Date: 20061013
  Serious: Yes (Other)
  Sender: FDA-Public Use
  Company Number: 2006059751

PATIENT
  Age: 58 Year
  Sex: Female

DRUGS (2)
  1. PHENYTOIN [Suspect]
     Indication: PROPHYLAXIS
     Dosage: 300 MG (1 D)
     Dates: start: 19890401, end: 19890701
  2. DEXAMETHASONE [Concomitant]

REACTIONS (4)
  - ANOREXIA [None]
  - BRAIN NEOPLASM [None]
  - HEPATITIS [None]
  - NAUSEA [None]
